FAERS Safety Report 7572732-8 (Version None)
Quarter: 2011Q2

REPORT INFORMATION
  Report Type: 
  Country: None (occurrence: None)
  Receive Date: 20110627
  Receipt Date: 20110613
  Transmission Date: 20111010
  Serious: Yes (Other)
  Sender: FDA-Public Use
  Company Number: GB-RANBAXY-2011R1-45460

PATIENT
  Age: 57 Year
  Sex: Female

DRUGS (2)
  1. AMOXICILLIN [Suspect]
     Indication: PRODUCT USED FOR UNKNOWN INDICATION
     Dosage: 500 MG, UNK
     Route: 048
     Dates: start: 20110601
  2. METFORMIN HCL [Concomitant]
     Indication: DIABETES MELLITUS
     Route: 065

REACTIONS (3)
  - DYSPNOEA [None]
  - HYPERHIDROSIS [None]
  - ERYTHEMA [None]
